FAERS Safety Report 19436954 (Version 1)
Quarter: 2021Q2

REPORT INFORMATION
  Report Type: Spontaneous
  Country: FR (occurrence: FR)
  Receive Date: 20210618
  Receipt Date: 20210618
  Transmission Date: 20210717
  Serious: Yes (Other)
  Sender: FDA-Public Use
  Company Number: FR-009507513-2106FRA003659

PATIENT
  Age: 9 Year
  Sex: Female

DRUGS (7)
  1. PLITICAN [Suspect]
     Active Substance: ALIZAPRIDE HYDROCHLORIDE
     Indication: PREMEDICATION
     Dosage: + 30 MG SI NAUS?ES
     Route: 042
     Dates: start: 20210510, end: 20210510
  2. IFOSFAMIDE. [Suspect]
     Active Substance: IFOSFAMIDE
     Indication: PANCREATOBLASTOMA
     Dosage: 320 MILLIGRAM
     Route: 042
     Dates: start: 20210512, end: 20210512
  3. ZOPHREN [ONDANSETRON HYDROCHLORIDE] [Suspect]
     Active Substance: ONDANSETRON
     Indication: PREMEDICATION
     Dosage: 3 DOSAGE FORM, QD
     Route: 048
     Dates: start: 20210510, end: 20210510
  4. EMEND [Suspect]
     Active Substance: APREPITANT
     Indication: PREMEDICATION
     Dosage: 1 DOSAGE FORM, QD
     Route: 048
     Dates: start: 20210510, end: 20210510
  5. ETOPOSIDE. [Suspect]
     Active Substance: ETOPOSIDE
     Indication: PANCREATOBLASTOMA
     Dosage: 110 MILLIGRAM
     Route: 042
     Dates: start: 20210510, end: 20210510
  6. DEXAMETHASONE. [Suspect]
     Active Substance: DEXAMETHASONE
     Indication: PREMEDICATION
     Dosage: + 30 MG SI NAUS?ES
     Route: 042
     Dates: start: 20210510, end: 20210510
  7. OLANZAPINE. [Suspect]
     Active Substance: OLANZAPINE
     Indication: PREMEDICATION
     Dosage: 2.5 MILLIGRAM, QD
     Route: 048
     Dates: start: 20210510, end: 20210510

REACTIONS (2)
  - Pyrexia [Recovered/Resolved]
  - Aplasia [Not Recovered/Not Resolved]

NARRATIVE: CASE EVENT DATE: 20210512
